FAERS Safety Report 15329687 (Version 1)
Quarter: 2018Q3

REPORT INFORMATION
  Report Type: Spontaneous
  Country: US (occurrence: US)
  Receive Date: 20180823
  Receipt Date: 20180823
  Transmission Date: 20181010
  Serious: No
  Sender: FDA-Public Use
  Company Number: None

PATIENT
  Age: 43 Year
  Sex: Male

DRUGS (1)
  1. ENBREL [Suspect]
     Active Substance: ETANERCEPT

REACTIONS (5)
  - Vomiting [None]
  - Malaise [None]
  - Nausea [None]
  - Blood glucose increased [None]
  - Low density lipoprotein increased [None]

NARRATIVE: CASE EVENT DATE: 20180822
